FAERS Safety Report 18144915 (Version 1)
Quarter: 2020Q3

REPORT INFORMATION
  Report Type: Spontaneous
  Country: JP (occurrence: JP)
  Receive Date: 20200813
  Receipt Date: 20200813
  Transmission Date: 20201103
  Serious: Yes (Other)
  Sender: FDA-Public Use
  Company Number: JP-ALLERGAN-2030128US

PATIENT
  Sex: Female

DRUGS (1)
  1. TESTOSTERONE UNK [Suspect]
     Active Substance: TESTOSTERONE
     Indication: VIRILISM
     Dosage: UNK
     Dates: start: 1998

REACTIONS (2)
  - Breast cancer [Unknown]
  - Off label use [Unknown]
